FAERS Safety Report 5003289-3 (Version None)
Quarter: 2006Q2

REPORT INFORMATION
  Report Type: 
  Country: None (occurrence: None)
  Receive Date: 20060516
  Receipt Date: 20060505
  Transmission Date: 20061013
  Serious: Yes (Death, Other)
  Sender: FDA-Public Use
  Company Number: CH-JNJFOC-20060500812

PATIENT
  Sex: Female

DRUGS (3)
  1. CAELYX [Suspect]
     Route: 042
  2. TAVEGYL [Concomitant]
  3. MEPHAMESON [Concomitant]

REACTIONS (13)
  - ALVEOLITIS FIBROSING [None]
  - ARTERIOSCLEROSIS CORONARY ARTERY [None]
  - BREAST CANCER METASTATIC [None]
  - CARDIAC FAILURE CONGESTIVE [None]
  - CARDIAC HYPERTROPHY [None]
  - ENDOCARDIAL FIBROSIS [None]
  - LYMPHANGIOSIS CARCINOMATOSA [None]
  - MACROPHAGES INCREASED [None]
  - PANCREATIC NECROSIS [None]
  - PLEURAL EFFUSION [None]
  - PULMONARY ALVEOLAR HAEMORRHAGE [None]
  - PULMONARY EMBOLISM [None]
  - PULMONARY OEDEMA [None]
